FAERS Safety Report 15102686 (Version 3)
Quarter: 2018Q4

REPORT INFORMATION
  Report Type: Report from Study
  Country: IL (occurrence: IL)
  Receive Date: 20180703
  Receipt Date: 20181018
  Transmission Date: 20190204
  Serious: Yes (Death, Hospitalization, Other)
  Sender: FDA-Public Use
  Company Number: IL-BAYER-2018-119868

PATIENT
  Age: 77 Year
  Sex: Male

DRUGS (4)
  1. XOFIGO [Suspect]
     Active Substance: RADIUM RA-223 DICHLORIDE
     Dosage: UNK
     Dates: start: 20180516, end: 20180516
  2. XOFIGO [Suspect]
     Active Substance: RADIUM RA-223 DICHLORIDE
     Dosage: UNK
     Dates: start: 20180711
  3. XOFIGO [Suspect]
     Active Substance: RADIUM RA-223 DICHLORIDE
     Dosage: UNK
     Dates: start: 20180808
  4. XOFIGO [Suspect]
     Active Substance: RADIUM RA-223 DICHLORIDE
     Dosage: UNK
     Dates: start: 20180905

REACTIONS (7)
  - Metastases to central nervous system [None]
  - Haemorrhage [None]
  - Haemoglobin decreased [None]
  - General physical health deterioration [Fatal]
  - Acute kidney injury [None]
  - Dehydration [None]
  - Hypercalcaemia [None]

NARRATIVE: CASE EVENT DATE: 2018
